FAERS Safety Report 8286184 (Version 3)
Quarter: 2012Q4

REPORT INFORMATION
  Report Type: 
  Country: US (occurrence: US)
  Receive Date: 20111213
  Receipt Date: 20121207
  Transmission Date: 20130627
  Serious: Yes (Hospitalization, Other)
  Sender: FDA-Public Use
  Company Number: US-GENZYME-THYM-1002575

PATIENT
  Age: 57 Year
  Sex: Female
  Weight: 96.6 kg

DRUGS (21)
  1. THYMOGLOBULIN [Suspect]
     Indication: RENAL TRANSPLANT
     Dosage: 125 mg, UNK (5 doses)
     Route: 065
     Dates: start: 20110510, end: 20110518
  2. VELCADE [Concomitant]
     Indication: PROPHYLAXIS AGAINST TRANSPLANT REJECTION
     Dosage: 2.5 mg, UNK
     Dates: start: 20110510, end: 20110520
  3. CELLCEPT [Concomitant]
     Indication: PROPHYLAXIS AGAINST TRANSPLANT REJECTION
     Dosage: 1500 mg, qd
     Dates: start: 20110907
  4. CELLCEPT [Concomitant]
     Dosage: 1000 mg, qd
     Route: 065
     Dates: start: 20120307
  5. VALCYTE [Concomitant]
     Indication: ANTIVIRAL PROPHYLAXIS
     Dosage: 450 mg, qd
     Dates: start: 20111129
  6. PROGRAF [Concomitant]
     Indication: PROPHYLAXIS AGAINST TRANSPLANT REJECTION
     Dosage: 4 mg, qd
     Route: 065
     Dates: start: 20110801
  7. PROGRAF [Concomitant]
     Dosage: 2 mg, qd
     Route: 065
     Dates: start: 20111228
  8. BACTRIM [Concomitant]
     Indication: ANTIBIOTIC PROPHYLAXIS
     Dosage: 1 DF, qd
     Route: 048
     Dates: start: 20110510
  9. PREDNISONE [Concomitant]
     Indication: PROPHYLAXIS AGAINST TRANSPLANT REJECTION
     Dosage: 5 mg, qd
     Route: 065
     Dates: start: 20110829
  10. PREDNISONE [Concomitant]
     Dosage: 5 mg, qd
     Route: 065
     Dates: start: 20120307
  11. NOVOLOG [Concomitant]
     Indication: DIABETES MELLITUS
     Dosage: 4 U, UNK
     Route: 065
     Dates: start: 20090102
  12. ASA [Concomitant]
     Indication: PRODUCT USED FOR UNKNOWN INDICATION
     Dosage: 81 mg, UNK
  13. SYNTHROID [Concomitant]
     Indication: HYPOTHYROIDISM
     Dosage: 200 mcg, qd
     Route: 065
     Dates: start: 20110711
  14. FESULFATE [Concomitant]
     Indication: PRODUCT USED FOR UNKNOWN INDICATION
     Dosage: 325 mg, bid
     Route: 065
  15. METOPROLOL [Concomitant]
     Indication: HYPERTENSION
     Dosage: 25 mg, bid
     Route: 065
     Dates: start: 20111128
  16. LEVAQUIN [Concomitant]
     Indication: PRODUCT USED FOR UNKNOWN INDICATION
     Dosage: 500 mg, qd
     Route: 065
  17. OMEPRAZOLE [Concomitant]
     Indication: PRODUCT USED FOR UNKNOWN INDICATION
     Dosage: UNK
     Route: 065
  18. XANAX [Concomitant]
     Indication: PRODUCT USED FOR UNKNOWN INDICATION
     Dosage: 1 mg, bid
     Route: 065
  19. AZITHROMYCIN [Concomitant]
     Indication: PNEUMONIA
     Dosage: UNK
     Route: 065
  20. BORTEZOMIB [Concomitant]
     Indication: RENAL TRANSPLANT
     Dosage: UNK
     Route: 065
     Dates: start: 20110510, end: 20110520
  21. LANTUS [Concomitant]
     Indication: DIABETES MELLITUS
     Dosage: 30 U, UNK
     Route: 065
     Dates: start: 20110907

REACTIONS (9)
  - Ascites [Recovered/Resolved]
  - Weight increased [Recovered/Resolved]
  - Ascites [Recovered/Resolved]
  - Pulmonary hypertension [Recovered/Resolved]
  - Fluid overload [Recovered/Resolved]
  - Generalised oedema [Recovered/Resolved]
  - Echocardiogram abnormal [Unknown]
  - Pneumonia [Recovered/Resolved]
  - Gait disturbance [Recovered/Resolved]
